FAERS Safety Report 10409090 (Version 1)
Quarter: 2014Q3

REPORT INFORMATION
  Report Type: Spontaneous
  Country: US (occurrence: None)
  Receive Date: 20140825
  Receipt Date: 20140825
  Transmission Date: 20150326
  Serious: No
  Sender: FDA-Public Use
  Company Number: None

PATIENT
  Age: 52 Year
  Sex: Female
  Weight: 70.31 kg

DRUGS (2)
  1. TRIAMCINOLONE ACETONIDE NASAL SPRAY [Suspect]
     Active Substance: TRIAMCINOLONE ACETONIDE
     Indication: MULTIPLE ALLERGIES
     Dosage: 2 SPRAYS/NOSTRIL ONCE DAILY NASAL SPRAY
     Route: 045
     Dates: start: 20140709, end: 20140710
  2. FLUTICASONE PROPIONATE NASAL [Suspect]
     Active Substance: FLUTICASONE PROPIONATE
     Indication: MULTIPLE ALLERGIES
     Dosage: 2 SPRAYS EACH NOSTRIL ONCE DAILY NASAL SPRAY
     Route: 045
     Dates: start: 20140730, end: 20140730

REACTIONS (4)
  - Oral candidiasis [None]
  - Tongue disorder [None]
  - Stomatitis [None]
  - Oropharyngeal pain [None]

NARRATIVE: CASE EVENT DATE: 20140730
